FAERS Safety Report 4551968-4 (Version None)
Quarter: 2005Q1

REPORT INFORMATION
  Report Type: 
  Country: None (occurrence: None)
  Receive Date: 20050112
  Receipt Date: 20041227
  Transmission Date: 20050727
  Serious: Yes (Disabling)
  Sender: FDA-Public Use
  Company Number: F01200404034

PATIENT
  Age: 46 Year
  Sex: Male

DRUGS (4)
  1. OXALIPLATIN - SOLUTION [Suspect]
     Indication: OESOPHAGEAL CANCER METASTATIC
     Dosage: INTRAVENOUS NOS
     Route: 042
     Dates: start: 20030422, end: 20030422
  2. FLUOROURACIL [Suspect]
     Dosage: INTRAVENOUS NOS
     Route: 042
     Dates: start: 20030422, end: 20030422
  3. LEUCOVORIN - SOLUTION [Suspect]
     Dosage: INTRAVENOUS NOS
     Route: 042
     Dates: start: 20030422, end: 20030422
  4. RADIOTHERAPY (ALSO SUSPECTED) [Concomitant]

REACTIONS (1)
  - CARDIAC FAILURE [None]
